FAERS Safety Report 10479856 (Version 4)
Quarter: 2016Q1

REPORT INFORMATION
  Report Type: Report from Study
  Country: US (occurrence: US)
  Receive Date: 20140929
  Receipt Date: 20160322
  Transmission Date: 20160525
  Serious: Yes (Other)
  Sender: FDA-Public Use
  Company Number: US-AMGEN-USASP2014072730

PATIENT
  Age: 61 Year
  Sex: Female

DRUGS (9)
  1. BENADRYL [Suspect]
     Active Substance: DIPHENHYDRAMINE HYDROCHLORIDE
     Indication: INJECTION SITE REACTION
     Dosage: UNK
     Route: 065
  2. BETAMETHASONE. [Suspect]
     Active Substance: BETAMETHASONE
     Indication: INJECTION SITE SWELLING
  3. BENADRYL [Suspect]
     Active Substance: DIPHENHYDRAMINE HYDROCHLORIDE
     Indication: INJECTION SITE PAIN
  4. BENADRYL [Suspect]
     Active Substance: DIPHENHYDRAMINE HYDROCHLORIDE
     Indication: INJECTION SITE PRURITUS
  5. BETAMETHASONE. [Suspect]
     Active Substance: BETAMETHASONE
     Indication: INJECTION SITE PAIN
  6. BENADRYL [Suspect]
     Active Substance: DIPHENHYDRAMINE HYDROCHLORIDE
     Indication: INJECTION SITE SWELLING
  7. ENBREL [Suspect]
     Active Substance: ETANERCEPT
     Indication: RHEUMATOID ARTHRITIS
     Dosage: 50 MG, QWK
     Route: 065
     Dates: start: 20140606
  8. BETAMETHASONE. [Suspect]
     Active Substance: BETAMETHASONE
     Indication: INJECTION SITE REACTION
     Dosage: UNK
     Route: 065
  9. BETAMETHASONE. [Suspect]
     Active Substance: BETAMETHASONE
     Indication: INJECTION SITE PRURITUS

REACTIONS (13)
  - Memory impairment [Unknown]
  - Fine motor skill dysfunction [Not Recovered/Not Resolved]
  - Injection site swelling [Not Recovered/Not Resolved]
  - Injection site reaction [Unknown]
  - Drug effect incomplete [Unknown]
  - Dyspnoea [Unknown]
  - Drug ineffective [Unknown]
  - Fatigue [Unknown]
  - Dysphagia [Unknown]
  - Injection site warmth [Not Recovered/Not Resolved]
  - Somnolence [Unknown]
  - Injection site pain [Not Recovered/Not Resolved]
  - Injection site pruritus [Not Recovered/Not Resolved]

NARRATIVE: CASE EVENT DATE: 2014
